FAERS Safety Report 20523522 (Version 1)
Quarter: 2022Q1

REPORT INFORMATION
  Report Type: Spontaneous
  Country: US (occurrence: None)
  Receive Date: 20220228
  Receipt Date: 20220228
  Transmission Date: 20220424
  Serious: Yes (Hospitalization)
  Sender: FDA-Public Use
  Company Number: US-MDD US Operations-MDD202202-000291

PATIENT
  Age: 56 Year
  Sex: Female

DRUGS (1)
  1. APOKYN [Suspect]
     Active Substance: APOMORPHINE HYDROCHLORIDE
     Indication: Parkinson^s disease
     Dosage: AS STARTER DOSE, TITRATED BY 0.1 ML EVERY FEW DAYS UPTO EFFECTIVE MAXIMUM RECOMMENDED DOSE OF 0.6 ML
     Route: 058
     Dates: start: 202201

REACTIONS (1)
  - Infection [Recovering/Resolving]
